FAERS Safety Report 21084689 (Version 1)
Quarter: 2022Q3

REPORT INFORMATION
  Report Type: Spontaneous
  Country: US (occurrence: US)
  Receive Date: 20220714
  Receipt Date: 20220714
  Transmission Date: 20221026
  Serious: No
  Sender: FDA-Public Use
  Company Number: US-MYLANLABS-2022M1051359

PATIENT
  Sex: Male

DRUGS (1)
  1. GABAPENTIN [Suspect]
     Active Substance: GABAPENTIN
     Indication: Restless legs syndrome
     Dosage: UNK
     Route: 065

REACTIONS (2)
  - Insomnia [Unknown]
  - Drug ineffective [Unknown]
